FAERS Safety Report 8402822-9 (Version None)
Quarter: 2012Q2

REPORT INFORMATION
  Report Type: 
  Country: None (occurrence: None)
  Receive Date: 20120323
  Receipt Date: 20101230
  Transmission Date: 20120825
  Serious: Yes (Hospitalization)
  Sender: FDA-Public Use
  Company Number: 163-21880-10103150

PATIENT
  Age: 68 Year
  Sex: Female

DRUGS (11)
  1. BECLOVENT (BECLOMETASONE DIPROPIONATE) [Concomitant]
  2. DURAGESIC-100 [Concomitant]
  3. REVLIMID [Suspect]
     Indication: MULTIPLE MYELOMA
     Dosage: 25 MG, 1 IN 1 D, PO
     Route: 048
     Dates: start: 20100812, end: 20101026
  4. SYNTHROID (LVEOTHYROXINE SODIUIM) [Concomitant]
  5. VITAMIN D [Concomitant]
  6. MAGNESIUM CITRATE (MAGNESIUM CITRATE) [Concomitant]
  7. ASPIRIN [Concomitant]
  8. REVLIMID [Suspect]
  9. CALCIUM CARBONATE [Concomitant]
  10. LIDODERM [Concomitant]
  11. REGLAN [Concomitant]

REACTIONS (2)
  - PLATELET COUNT DECREASED [None]
  - HAEMOGLOBIN DECREASED [None]
